FAERS Safety Report 4429356-0 (Version None)
Quarter: 2004Q3

REPORT INFORMATION
  Report Type: 
  Country: None (occurrence: None)
  Receive Date: 20040819
  Receipt Date: 20040605
  Transmission Date: 20050211
  Serious: Yes (Other)
  Sender: FDA-Public Use
  Company Number: PHEH2004US06267

PATIENT
  Age: 56 Year
  Sex: Female
  Weight: 120 kg

DRUGS (5)
  1. DIOVAN HCT [Suspect]
     Indication: HYPERTENSION
     Dosage: ONE TABLET QD
     Route: 048
  2. DIOVAN HCT [Suspect]
     Dosage: 2 TAB DAILY
     Route: 048
     Dates: end: 20040605
  3. NEXIUM [Concomitant]
  4. ZOCOR [Concomitant]
  5. NORVASC [Concomitant]

REACTIONS (14)
  - AMNESIA [None]
  - BACK PAIN [None]
  - BLOOD ALBUMIN INCREASED [None]
  - BLOOD GLUCOSE FLUCTUATION [None]
  - CONCUSSION [None]
  - DEPRESSION [None]
  - DIABETES MELLITUS [None]
  - DISABILITY [None]
  - DISTURBANCE IN ATTENTION [None]
  - FALL [None]
  - GOUT [None]
  - PROTEIN TOTAL INCREASED [None]
  - PRURITUS GENERALISED [None]
  - RENAL DISORDER [None]
